FAERS Safety Report 11728399 (Version 4)
Quarter: 2018Q2

REPORT INFORMATION
  Report Type: Report from Study
  Country: US (occurrence: US)
  Receive Date: 20151112
  Receipt Date: 20180612
  Transmission Date: 20180711
  Serious: Yes (Hospitalization)
  Sender: FDA-Public Use
  Company Number: US-EISAI MEDICAL RESEARCH-EC-2014-002479

PATIENT
  Age: 74 Year
  Sex: Female
  Weight: 96.8 kg

DRUGS (18)
  1. LIPITOR [Concomitant]
     Active Substance: ATORVASTATIN CALCIUM
     Route: 048
     Dates: start: 20120416
  2. LISINOPRIL. [Concomitant]
     Active Substance: LISINOPRIL
     Route: 048
     Dates: start: 20130412
  3. ZETIA [Concomitant]
     Active Substance: EZETIMIBE
     Route: 048
     Dates: start: 20090623
  4. LOSARTAN. [Concomitant]
     Active Substance: LOSARTAN
     Dates: start: 20150322
  5. ALEVE [Concomitant]
     Active Substance: NAPROXEN SODIUM
     Dates: start: 20150428
  6. PLACEBO [Suspect]
     Active Substance: UNSPECIFIED INGREDIENT
     Indication: WEIGHT CONTROL
     Route: 048
     Dates: start: 20140924
  7. NITROGLYCERIN. [Concomitant]
     Active Substance: NITROGLYCERIN
     Route: 048
     Dates: start: 20100823
  8. VITAMIN D [Concomitant]
     Active Substance: CHOLECALCIFEROL
     Route: 048
     Dates: start: 2012
  9. ATENOLOL. [Concomitant]
     Active Substance: ATENOLOL
  10. ATORVASTATIN [Concomitant]
     Active Substance: ATORVASTATIN
  11. FAMOTIDINE. [Concomitant]
     Active Substance: FAMOTIDINE
     Route: 048
     Dates: start: 20020829
  12. GLIPIZIDE. [Concomitant]
     Active Substance: GLIPIZIDE
     Route: 048
     Dates: start: 20090623
  13. EFFIENT [Concomitant]
     Active Substance: PRASUGREL HYDROCHLORIDE
  14. IMDUR [Concomitant]
     Active Substance: ISOSORBIDE MONONITRATE
     Route: 048
     Dates: start: 20120416
  15. METOPROLOL TARTRATE. [Concomitant]
     Active Substance: METOPROLOL TARTRATE
     Dates: start: 20131114
  16. METFORMIN [Concomitant]
     Active Substance: METFORMIN HYDROCHLORIDE
     Route: 048
     Dates: start: 20100222
  17. NORVASC [Concomitant]
     Active Substance: AMLODIPINE BESYLATE
  18. ASPIRIN. [Concomitant]
     Active Substance: ASPIRIN
     Route: 048
     Dates: start: 20090623

REACTIONS (3)
  - Acute myocardial infarction [Recovered/Resolved]
  - Euphoric mood [Recovered/Resolved]
  - Myalgia [Recovered/Resolved]

NARRATIVE: CASE EVENT DATE: 20141101
